FAERS Safety Report 4853612-5 (Version None)
Quarter: 2005Q4

REPORT INFORMATION
  Report Type: 
  Country: None (occurrence: None)
  Receive Date: 20051125
  Receipt Date: 20050503
  Transmission Date: 20060501
  Serious: Yes (Other)
  Sender: FDA-Public Use
  Company Number: US-JNJFOC-20050401957

PATIENT
  Age: 33 Year
  Sex: Female
  Weight: 92.9874 kg

DRUGS (5)
  1. LEVAQUIN [Suspect]
     Indication: ACUTE SINUSITIS
     Dosage: 500 MG, 1 IN 24 HOUR, ORAL
     Route: 048
     Dates: start: 20050112, end: 20050202
  2. NASACORT AQ (TRIAMCINOLONE ACETONIDE) SPRAY [Concomitant]
  3. TUSSI BID (ALL OTHER THERAPEUTIC PRODUCTS) [Concomitant]
  4. SINGULAIR [Concomitant]
  5. ALLEGRA D (ALLEGRA-D) [Concomitant]

REACTIONS (2)
  - HYPOAESTHESIA ORAL [None]
  - NEUROPATHY PERIPHERAL [None]
